FAERS Safety Report 8214501-1 (Version None)
Quarter: 2012Q1

REPORT INFORMATION
  Report Type: 
  Country: None (occurrence: None)
  Receive Date: 20120316
  Receipt Date: 20120316
  Transmission Date: 20120608
  Serious: Yes (Other)
  Sender: FDA-Public Use
  Company Number: None

PATIENT
  Age: 32 Year
  Sex: Female
  Weight: 49.4 kg

DRUGS (1)
  1. ZYVOX [Suspect]
     Indication: BRONCHITIS
     Dosage: 600MG
     Route: 041
     Dates: start: 20120308, end: 20120312

REACTIONS (2)
  - BLOOD LACTIC ACID INCREASED [None]
  - ACIDOSIS [None]
